FAERS Safety Report 24896939 (Version 1)
Quarter: 2025Q1

REPORT INFORMATION
  Report Type: Spontaneous
  Country: US (occurrence: US)
  Receive Date: 20250128
  Receipt Date: 20250128
  Transmission Date: 20250408
  Serious: No
  Sender: BRISTOL-MYERS SQUIBB COMPANY
  Company Number: US-BRISTOL-MYERS SQUIBB COMPANY-2025-012152

PATIENT
  Age: 71 Year
  Sex: Female

DRUGS (7)
  1. ELIQUIS [Suspect]
     Active Substance: APIXABAN
     Indication: Cerebrovascular accident
  2. ELIQUIS [Suspect]
     Active Substance: APIXABAN
     Indication: Blood pressure increased
  3. ELIQUIS [Suspect]
     Active Substance: APIXABAN
     Indication: Heart rate increased
  4. SOTALOL [Suspect]
     Active Substance: SOTALOL
     Indication: Cerebrovascular accident
  5. SOTALOL [Suspect]
     Active Substance: SOTALOL
     Indication: Blood pressure increased
  6. SOTALOL [Suspect]
     Active Substance: SOTALOL
     Indication: Heart rate increased
  7. XELJANZ XR [Suspect]
     Active Substance: TOFACITINIB CITRATE
     Indication: Product used for unknown indication

REACTIONS (1)
  - Back pain [Unknown]
